FAERS Safety Report 8342121-7 (Version None)
Quarter: 2012Q2

REPORT INFORMATION
  Report Type: 
  Country: None (occurrence: None)
  Receive Date: 20120507
  Receipt Date: 20120425
  Transmission Date: 20120825
  Serious: Yes (Other)
  Sender: FDA-Public Use
  Company Number: US-CELGENEUS-163-21880-09070484

PATIENT
  Age: 42 Year
  Sex: Female

DRUGS (4)
  1. REVLIMID [Suspect]
     Indication: CUTANEOUS LUPUS ERYTHEMATOSUS
     Dosage: 5 MILLIGRAM
     Route: 048
  2. AZATHIOPRINE [Concomitant]
     Dosage: 75 MILLIGRAM
     Route: 065
  3. QUINACRINE [Concomitant]
     Dosage: 100 MILLIGRAM
     Route: 065
  4. HYDROXYCHLOROQUINE [Concomitant]
     Dosage: 200 MILLIGRAM
     Route: 065

REACTIONS (4)
  - PROTEINURIA [None]
  - LYMPHOPENIA [None]
  - SYSTEMIC LUPUS ERYTHEMATOSUS [None]
  - ARTHRALGIA [None]
